FAERS Safety Report 8385759-3 (Version None)
Quarter: 2012Q2

REPORT INFORMATION
  Report Type: 
  Country: None (occurrence: None)
  Receive Date: 20120523
  Receipt Date: 20120523
  Transmission Date: 20120825
  Serious: Yes (Hospitalization)
  Sender: FDA-Public Use
  Company Number: None

PATIENT
  Age: 86 Year
  Sex: Male
  Weight: 64.5 kg

DRUGS (2)
  1. WARFARIN SODIUM [Suspect]
     Indication: ATRIAL FLUTTER
     Dosage: 5 MG EVERY DAY PO
     Route: 048
     Dates: start: 20120427, end: 20120515
  2. CIPROFLOXACIN [Suspect]
     Dosage: 500 MG PO
     Route: 048
     Dates: start: 20120430, end: 20120510

REACTIONS (2)
  - HAEMATURIA [None]
  - ANAEMIA [None]
